FAERS Safety Report 16973617 (Version 2)
Quarter: 2019Q4

REPORT INFORMATION
  Report Type: Spontaneous
  Country: US (occurrence: US)
  Receive Date: 20191030
  Receipt Date: 20191108
  Transmission Date: 20200122
  Serious: Yes (Hospitalization, Other)
  Sender: FDA-Public Use
  Company Number: US-ELI_LILLY_AND_COMPANY-US201910010201

PATIENT
  Age: 47 Year
  Sex: Male

DRUGS (3)
  1. HUMULIN R [Suspect]
     Active Substance: INSULIN HUMAN
     Indication: DIABETES MELLITUS
     Dosage: UNK UNK, UNKNOWN
     Route: 065
  2. HUMULIN R [Suspect]
     Active Substance: INSULIN HUMAN
     Dosage: UNK UNK, EVERY TWO WEEKS
     Route: 058
  3. HUMULIN R [Suspect]
     Active Substance: INSULIN HUMAN
     Indication: DIABETES MELLITUS
     Dosage: UNK UNK, EVERY TWO WEEKS
     Route: 058
     Dates: start: 2015

REACTIONS (11)
  - Dyspnoea [Unknown]
  - Pleural effusion [Unknown]
  - Gait disturbance [Unknown]
  - Wrong product administered [Unknown]
  - Pericardial effusion [Unknown]
  - Hypertension [Unknown]
  - Blood glucose abnormal [Unknown]
  - Insulin resistance [Unknown]
  - Neuropathy peripheral [Unknown]
  - Cardiac failure congestive [Unknown]
  - Weight increased [Unknown]

NARRATIVE: CASE EVENT DATE: 2015
